FAERS Safety Report 16788343 (Version 2)
Quarter: 2019Q4

REPORT INFORMATION
  Report Type: Spontaneous
  Country: FR (occurrence: FR)
  Receive Date: 20190910
  Receipt Date: 20191115
  Transmission Date: 20200122
  Serious: Yes (Other)
  Sender: FDA-Public Use
  Company Number: FR-BEH-2019106690

PATIENT
  Age: 66 Year
  Sex: Male
  Weight: 80 kg

DRUGS (8)
  1. RAMIPRIL. [Concomitant]
     Active Substance: RAMIPRIL
  2. BRILIQUE [Concomitant]
     Active Substance: TICAGRELOR
  3. LYRICA [Concomitant]
     Active Substance: PREGABALIN
  4. TAHOR [Concomitant]
     Active Substance: ATORVASTATIN CALCIUM
  5. HIZENTRA [Suspect]
     Active Substance: HUMAN IMMUNOGLOBULIN G
     Indication: GUILLAIN-BARRE SYNDROME
     Dosage: 40 GRAM, QW
     Route: 058
     Dates: start: 201707
  6. BISOPROLOL [Concomitant]
     Active Substance: BISOPROLOL
  7. KARDEGIC [Concomitant]
     Active Substance: ASPIRIN DL-LYSINE
  8. LANSOPRAZOLE. [Concomitant]
     Active Substance: LANSOPRAZOLE

REACTIONS (1)
  - Injection site eczema [Recovering/Resolving]

NARRATIVE: CASE EVENT DATE: 20190930
